FAERS Safety Report 14649477 (Version 1)
Quarter: 2018Q1

REPORT INFORMATION
  Report Type: Spontaneous
  Country: US (occurrence: US)
  Receive Date: 20180316
  Receipt Date: 20180316
  Transmission Date: 20180509
  Serious: No
  Sender: FDA-Public Use
  Company Number: US-ELI_LILLY_AND_COMPANY-US201803004366

PATIENT
  Age: 59 Year
  Sex: Female

DRUGS (1)
  1. TRULICITY [Suspect]
     Active Substance: DULAGLUTIDE
     Indication: PRODUCT USED FOR UNKNOWN INDICATION
     Dosage: 1.5 MG, UNKNOWN
     Route: 058
     Dates: start: 20180302

REACTIONS (12)
  - Malaise [Unknown]
  - Lip swelling [Unknown]
  - Chills [Unknown]
  - Drug hypersensitivity [Unknown]
  - Headache [Unknown]
  - Oral mucosal eruption [Unknown]
  - Nausea [Unknown]
  - Eye swelling [Unknown]
  - Oral discomfort [Unknown]
  - Oral disorder [Unknown]
  - Throat tightness [Unknown]
  - Erythema [Unknown]

NARRATIVE: CASE EVENT DATE: 20180302
